FAERS Safety Report 21473254 (Version 1)
Quarter: 2022Q4

REPORT INFORMATION
  Report Type: Spontaneous
  Country: US (occurrence: None)
  Receive Date: 20221018
  Receipt Date: 20221018
  Transmission Date: 20230113
  Serious: Yes (Life-Threatening, Hospitalization, Disabling, Other)
  Sender: FDA-Public Use
  Company Number: None

PATIENT

DRUGS (14)
  1. NOVOLIN N [Suspect]
     Active Substance: INSULIN HUMAN
     Indication: Type 2 diabetes mellitus
     Dosage: FREQUENCY : TWICE A DAY;?
     Route: 058
     Dates: start: 20210625, end: 20221005
  2. NOVOLIN N [Suspect]
     Active Substance: INSULIN HUMAN
     Indication: Hyperglycaemia
  3. KEPPRA [Concomitant]
     Active Substance: LEVETIRACETAM
  4. METFORMIN [Concomitant]
     Active Substance: METFORMIN HYDROCHLORIDE
  5. HUMULIN BILE [Concomitant]
  6. ROLLER WALKER [Concomitant]
  7. VITAMIN B12 [Concomitant]
     Active Substance: CYANOCOBALAMIN
  8. VITAMIN D [Concomitant]
     Active Substance: VITAMIN D NOS
  9. VITAMIN E [Concomitant]
     Active Substance: .ALPHA.-TOCOPHEROL
  10. MOTAMVEIL [Concomitant]
  11. VITAMIN C [Concomitant]
     Active Substance: ASCORBIC ACID
  12. BLADDER SUPPORT [Concomitant]
  13. TYLENOL [Concomitant]
     Active Substance: ACETAMINOPHEN
  14. JOINT HEALTH [Concomitant]

REACTIONS (8)
  - Osteomyelitis [None]
  - Localised infection [None]
  - Toe amputation [None]
  - Accident [None]
  - Wound [None]
  - Oedema [None]
  - Joint swelling [None]
  - Wound haemorrhage [None]

NARRATIVE: CASE EVENT DATE: 20210926
